FAERS Safety Report 7905121-4 (Version None)
Quarter: 2011Q4

REPORT INFORMATION
  Report Type: 
  Country: None (occurrence: None)
  Receive Date: 20111109
  Receipt Date: 20111101
  Transmission Date: 20120403
  Serious: Yes (Other)
  Sender: FDA-Public Use
  Company Number: PHHY2011IN96713

PATIENT
  Age: 67 Year
  Sex: Male

DRUGS (2)
  1. HYDROXYZINE [Suspect]
     Indication: PSORIASIS
     Dosage: 10 MG, UNK
  2. STEROIDS NOS [Concomitant]

REACTIONS (6)
  - PYREXIA [None]
  - RASH PUSTULAR [None]
  - NEUTROPHILIA [None]
  - PRURITUS [None]
  - ERYTHEMA [None]
  - ACUTE GENERALISED EXANTHEMATOUS PUSTULOSIS [None]
